FAERS Safety Report 8445485-9 (Version None)
Quarter: 2012Q2

REPORT INFORMATION
  Report Type: 
  Country: None (occurrence: None)
  Receive Date: 20120618
  Receipt Date: 20120613
  Transmission Date: 20120825
  Serious: Yes (Life-Threatening, Hospitalization)
  Sender: FDA-Public Use
  Company Number: DE-JNJFOC-20120605776

PATIENT
  Age: 41 Year
  Sex: Male

DRUGS (17)
  1. LORAZEPAM [Concomitant]
     Route: 048
     Dates: start: 20120416, end: 20120506
  2. BISOPROLOL FUMARATE [Concomitant]
     Route: 048
     Dates: start: 20120308
  3. RISPERDAL [Suspect]
     Route: 048
     Dates: start: 20120301
  4. REMERGIL [Concomitant]
     Route: 048
     Dates: start: 20120403, end: 20120405
  5. REMERGIL [Concomitant]
     Route: 048
     Dates: start: 20120312, end: 20120321
  6. RISPERDAL CONSTA [Suspect]
     Indication: PRODUCT USED FOR UNKNOWN INDICATION
     Route: 030
     Dates: start: 20120412, end: 20120412
  7. LORAZEPAM [Concomitant]
     Route: 048
     Dates: start: 20120403, end: 20120415
  8. REMERGIL [Concomitant]
     Route: 048
     Dates: start: 20120406
  9. REMERGIL [Concomitant]
     Route: 048
     Dates: start: 20120229, end: 20120311
  10. VENLAFAXINE HYDROCHLORIDE [Concomitant]
     Route: 048
     Dates: start: 20120417, end: 20120421
  11. RISPERDAL [Suspect]
     Indication: PRODUCT USED FOR UNKNOWN INDICATION
     Route: 048
     Dates: end: 20120229
  12. REMERGIL [Concomitant]
     Route: 048
     Dates: start: 20120322, end: 20120402
  13. LORAZEPAM [Concomitant]
     Route: 048
     Dates: start: 20120229, end: 20120321
  14. LORAZEPAM [Concomitant]
     Route: 048
     Dates: start: 20120507
  15. RISPERDAL CONSTA [Suspect]
     Route: 030
     Dates: start: 20120329, end: 20120329
  16. LORAZEPAM [Concomitant]
     Route: 048
     Dates: start: 20120322, end: 20120402
  17. VENLAFAXINE HYDROCHLORIDE [Concomitant]
     Route: 048
     Dates: start: 20120422

REACTIONS (1)
  - PULMONARY EMBOLISM [None]
